FAERS Safety Report 8879207 (Version 1)
Quarter: 2012Q4

REPORT INFORMATION
  Report Type: Spontaneous
  Country: FR (occurrence: None)
  Receive Date: 20121026
  Receipt Date: 20121026
  Transmission Date: 20130627
  Serious: Yes (Death, Hospitalization)
  Sender: FDA-Public Use
  Company Number: ZOLP20120085

PATIENT
  Age: 27 Year
  Sex: Male

DRUGS (4)
  1. ZOLPIDEM TARTRATE [Suspect]
     Indication: PRODUCT USED FOR UNKNOWN INDICATION
     Route: 048
  2. CYAMEMAZINE [Suspect]
     Indication: PRODUCT USED FOR UNKNOWN INDICATION
  3. CLOBAZAM [Suspect]
     Indication: PRODUCT USED FOR UNKNOWN INDICATION
  4. CARBAMAZEPINE [Suspect]
     Indication: PRODUCT USED FOR UNKNOWN INDICATION

REACTIONS (21)
  - Coma [None]
  - Blood pressure systolic decreased [None]
  - Oxygen saturation decreased [None]
  - Heart rate increased [None]
  - Hypothermia [None]
  - Abdominal distension [None]
  - Gastrointestinal sounds abnormal [None]
  - Pulse absent [None]
  - Peripheral ischaemia [None]
  - Hyperkalaemia [None]
  - Blood creatinine increased [None]
  - Blood lactic acid increased [None]
  - Amylase increased [None]
  - Lipase increased [None]
  - Intestinal dilatation [None]
  - Vascular compression [None]
  - Cardiac arrest [None]
  - Megacolon [None]
  - Abdominal compartment syndrome [None]
  - Multi-organ disorder [None]
  - Ischaemia [None]
